FAERS Safety Report 7346560-2 (Version None)
Quarter: 2011Q1

REPORT INFORMATION
  Report Type: 
  Country: None (occurrence: None)
  Receive Date: 20110311
  Receipt Date: 20110303
  Transmission Date: 20110831
  Serious: Yes (Other)
  Sender: FDA-Public Use
  Company Number: IT-JNJFOC-20110302613

PATIENT
  Age: 34 Year
  Sex: Female

DRUGS (5)
  1. HALDOL [Suspect]
     Indication: ILL-DEFINED DISORDER
     Route: 048
  2. SEROQUEL [Suspect]
     Indication: ILL-DEFINED DISORDER
     Route: 048
  3. XANAX [Suspect]
     Indication: ILL-DEFINED DISORDER
     Route: 048
  4. EN [Suspect]
     Indication: ILL-DEFINED DISORDER
     Route: 048
  5. TRITTICO [Suspect]
     Indication: ILL-DEFINED DISORDER
     Dosage: 4 TABLETS
     Route: 048

REACTIONS (3)
  - SLUGGISHNESS [None]
  - SOPOR [None]
  - SELF INJURIOUS BEHAVIOUR [None]
